FAERS Safety Report 12849622 (Version 1)
Quarter: 2016Q4

REPORT INFORMATION
  Report Type: Spontaneous
  Country: CA (occurrence: CA)
  Receive Date: 20161014
  Receipt Date: 20161014
  Transmission Date: 20170207
  Serious: Yes (Hospitalization)
  Sender: FDA-Public Use
  Company Number: CA-SA-2016SA186207

PATIENT
  Sex: Female

DRUGS (9)
  1. LOVENOX [Suspect]
     Active Substance: ENOXAPARIN SODIUM
     Indication: AORTIC VALVE DISEASE
     Dosage: SOLUTION
     Route: 065
  2. WARFARIN [Suspect]
     Active Substance: WARFARIN
     Indication: MITRAL VALVE DISEASE
     Route: 065
  3. LOVENOX [Suspect]
     Active Substance: ENOXAPARIN SODIUM
     Indication: MITRAL VALVE DISEASE
     Dosage: SOLUTION
     Route: 065
  4. LOVENOX [Suspect]
     Active Substance: ENOXAPARIN SODIUM
     Indication: ATRIAL FIBRILLATION
     Dosage: SOLUTION
     Route: 065
  5. HEPARIN [Suspect]
     Active Substance: HEPARIN SODIUM
     Indication: ATRIAL FIBRILLATION
     Route: 065
  6. HEPARIN [Suspect]
     Active Substance: HEPARIN SODIUM
     Indication: MITRAL VALVE DISEASE
     Route: 065
  7. HEPARIN [Suspect]
     Active Substance: HEPARIN SODIUM
     Indication: AORTIC VALVE DISEASE
     Route: 065
  8. WARFARIN [Suspect]
     Active Substance: WARFARIN
     Indication: ATRIAL FIBRILLATION
     Route: 065
  9. WARFARIN [Suspect]
     Active Substance: WARFARIN
     Indication: AORTIC VALVE DISEASE
     Route: 065

REACTIONS (3)
  - Haemorrhage [Recovered/Resolved]
  - Maternal exposure during pregnancy [Unknown]
  - Haemoglobin decreased [Recovered/Resolved]
